FAERS Safety Report 7406859-8 (Version None)
Quarter: 2011Q2

REPORT INFORMATION
  Report Type: 
  Country: None (occurrence: None)
  Receive Date: 20110406
  Receipt Date: 20110406
  Transmission Date: 20111010
  Serious: Yes (Death, Life-Threatening, Hospitalization, Disabling, Congenital Anomaly, Other)
  Sender: FDA-Public Use
  Company Number: None

PATIENT
  Age: 33 Year
  Sex: Female
  Weight: 55.3388 kg

DRUGS (1)
  1. IMPLANON [Suspect]
     Indication: CONTRACEPTION
     Dates: start: 20101001, end: 20110406

REACTIONS (7)
  - FATIGUE [None]
  - GASTROINTESTINAL STROMAL TUMOUR [None]
  - FALLOPIAN TUBE DISORDER [None]
  - BACK PAIN [None]
  - ABDOMINAL PAIN [None]
  - HEADACHE [None]
  - PELVIC PAIN [None]
